FAERS Safety Report 7921801-9 (Version None)
Quarter: 2011Q4

REPORT INFORMATION
  Report Type: 
  Country: None (occurrence: None)
  Receive Date: 20111117
  Receipt Date: 20111109
  Transmission Date: 20120403
  Serious: Yes (Death, Hospitalization, Other)
  Sender: FDA-Public Use
  Company Number: US-BAXTER-2011BH033742

PATIENT
  Sex: Female

DRUGS (2)
  1. DIANEAL [Suspect]
     Indication: PERITONEAL DIALYSIS
     Route: 033
     Dates: start: 20070101, end: 20111030
  2. UNSPECIFIED INSULIN INJECTIONS [Suspect]
     Indication: PRODUCT USED FOR UNKNOWN INDICATION
     Route: 065

REACTIONS (6)
  - THERMAL BURN [None]
  - PELVIC ABSCESS [None]
  - NECROTISING FASCIITIS [None]
  - SKIN LESION [None]
  - ABSCESS LIMB [None]
  - RASH [None]
